FAERS Safety Report 4277156-7 (Version None)
Quarter: 2004Q1

REPORT INFORMATION
  Report Type: 
  Country: None (occurrence: None)
  Receive Date: 20040120
  Receipt Date: 20031222
  Transmission Date: 20041129
  Serious: No
  Sender: FDA-Public Use
  Company Number: SGB1-2003-00694

PATIENT
  Age: 74 Year
  Sex: Female

DRUGS (1)
  1. AGRYLIN [Suspect]
     Indication: ESSENTIAL THROMBOCYTHAEMIA
     Dosage: 2.5 MG, 1X/DAY:QD
     Route: 048
     Dates: start: 19991101

REACTIONS (2)
  - BONE MARROW DEPRESSION [None]
  - MICROCYTIC ANAEMIA [None]
